FAERS Safety Report 9924303 (Version 2)
Quarter: 2015Q4

REPORT INFORMATION
  Report Type: Report from Study
  Country: US (occurrence: US)
  Receive Date: 20140226
  Receipt Date: 20151008
  Transmission Date: 20160305
  Serious: Yes (Hospitalization, Other)
  Sender: FDA-Public Use
  Company Number: US-ROCHE-1334339

PATIENT
  Age: 55 Year
  Sex: Female

DRUGS (8)
  1. LUCENTIS [Suspect]
     Active Substance: RANIBIZUMAB
     Indication: AGE-RELATED MACULAR DEGENERATION
     Dosage: IN RIGHT AND LEFT EYE
     Route: 050
     Dates: start: 20110120
  2. LUCENTIS [Suspect]
     Active Substance: RANIBIZUMAB
     Indication: NEOVASCULAR AGE-RELATED MACULAR DEGENERATION
  3. ZYMAXID [Concomitant]
     Active Substance: GATIFLOXACIN
     Dosage: TID OU
     Route: 065
  4. METFORMIN [Concomitant]
     Active Substance: METFORMIN HYDROCHLORIDE
     Route: 065
  5. TETRAVISC [Concomitant]
     Active Substance: TETRACAINE HYDROCHLORIDE
  6. LUCENTIS [Suspect]
     Active Substance: RANIBIZUMAB
     Indication: CHOROIDAL NEOVASCULARISATION
     Route: 050
  7. AVASTIN [Suspect]
     Active Substance: BEVACIZUMAB
     Indication: CHOROIDAL NEOVASCULARISATION
     Route: 065
  8. BETADINE [Concomitant]
     Active Substance: POVIDONE-IODINE
     Route: 065

REACTIONS (22)
  - Diabetes mellitus [Unknown]
  - Vitreous detachment [Unknown]
  - Visual acuity reduced [Unknown]
  - Headache [Unknown]
  - Photopsia [Unknown]
  - Blood glucose increased [Unknown]
  - Retinal haemorrhage [Unknown]
  - Myocardial infarction [Unknown]
  - Retinal disorder [Unknown]
  - Eye discharge [Unknown]
  - Ophthalmological examination abnormal [Unknown]
  - Pruritus [Unknown]
  - Cardiac failure congestive [Unknown]
  - Erythema [Unknown]
  - Vitreous floaters [Unknown]
  - Visual impairment [Unknown]
  - Eye pain [Recovered/Resolved]
  - Metamorphopsia [Unknown]
  - Cataract nuclear [Unknown]
  - Photophobia [Unknown]
  - Retinal detachment [Unknown]
  - Fatigue [Unknown]

NARRATIVE: CASE EVENT DATE: 20110608
